FAERS Safety Report 13266306 (Version 2)
Quarter: 2017Q1

REPORT INFORMATION
  Report Type: Spontaneous
  Country: JP (occurrence: JP)
  Receive Date: 20170223
  Receipt Date: 20170328
  Transmission Date: 20170428
  Serious: Yes (Hospitalization)
  Sender: FDA-Public Use
  Company Number: JP-IMPAX LABORATORIES, INC-2017-IPXL-00377

PATIENT
  Age: 44 Year
  Sex: Female

DRUGS (4)
  1. CIMETIDINE [Suspect]
     Active Substance: CIMETIDINE
     Indication: NAUSEA
     Dosage: UNK
     Route: 065
     Dates: start: 198807
  2. HYDROXYZINE PAMOATE. [Suspect]
     Active Substance: HYDROXYZINE PAMOATE
     Indication: INSOMNIA
     Dosage: UNK
     Route: 065
     Dates: start: 198807
  3. CIMETIDINE [Suspect]
     Active Substance: CIMETIDINE
     Indication: VOMITING
  4. METOCLOPRAMIDE HYDROCHLORIDE IR [Suspect]
     Active Substance: METOCLOPRAMIDE HYDROCHLORIDE
     Indication: MELAENA
     Dosage: UNK
     Route: 065
     Dates: start: 198807

REACTIONS (2)
  - Neuroleptic malignant syndrome [Recovered/Resolved]
  - CSF lactate increased [Recovered/Resolved]
